FAERS Safety Report 4549958-0 (Version None)
Quarter: 2005Q1

REPORT INFORMATION
  Report Type: 
  Country: None (occurrence: None)
  Receive Date: 20050110
  Receipt Date: 20050103
  Transmission Date: 20050727
  Serious: No
  Sender: FDA-Public Use
  Company Number: 163-20785-04120053

PATIENT
  Age: 76 Year
  Sex: Female

DRUGS (7)
  1. THALOMID [Suspect]
     Indication: MULTIPLE MYELOMA
     Dosage: 200 MG, DAILY,  ORAL
     Route: 048
     Dates: start: 20040907
  2. LANOXIN [Concomitant]
  3. TENORMIN [Concomitant]
  4. ELEBREX (CELECOXIB0 [Concomitant]
  5. LIPITOR [Concomitant]
  6. ATIVAN [Concomitant]
  7. SYNTHROID [Concomitant]

REACTIONS (1)
  - BRADYCARDIA [None]
